FAERS Safety Report 5208679-1 (Version None)
Quarter: 2007Q1

REPORT INFORMATION
  Report Type: 
  Country: None (occurrence: None)
  Receive Date: 20070116
  Receipt Date: 20070105
  Transmission Date: 20070707
  Serious: Yes (Hospitalization)
  Sender: FDA-Public Use
  Company Number: PHRM2007FR00483

PATIENT
  Age: 75 Year
  Sex: Female

DRUGS (7)
  1. TAMOXIFEN CITRATE [Concomitant]
     Indication: BREAST CANCER METASTATIC
  2. ACARBOSE [Concomitant]
  3. DURAGESIC-100 [Concomitant]
  4. FENOFIBRATE [Concomitant]
     Indication: HYPERCHOLESTEROLAEMIA
  5. ASPEGIC 325 [Concomitant]
     Dosage: 1 G, TID
  6. ESOMEPRAZOLE MAGNESIUM [Concomitant]
  7. ZOMETA [Suspect]
     Indication: METASTASES TO BONE
     Dosage: 4 MG, QMO
     Route: 042
     Dates: start: 20040401, end: 20050101

REACTIONS (7)
  - BONE LESION EXCISION [None]
  - EXOSTOSIS [None]
  - IMPAIRED HEALING [None]
  - NEURALGIA [None]
  - TOOTH EXTRACTION [None]
  - TOOTHACHE [None]
  - WOUND DEBRIDEMENT [None]
